FAERS Safety Report 23679654 (Version 1)
Quarter: 2024Q1

REPORT INFORMATION
  Report Type: Spontaneous
  Country: ES (occurrence: ES)
  Receive Date: 20240327
  Receipt Date: 20240327
  Transmission Date: 20240410
  Serious: Yes (Hospitalization)
  Sender: FDA-Public Use
  Company Number: ES-AEMPS-1467106

PATIENT
  Age: 73 Year
  Sex: Male

DRUGS (3)
  1. CIPROFLOXACIN [Suspect]
     Active Substance: CIPROFLOXACIN
     Indication: Pneumonia
     Dosage: UNK
     Route: 048
     Dates: start: 20230616, end: 20230625
  2. CETUXIMAB [Suspect]
     Active Substance: CETUXIMAB
     Indication: Laryngeal cancer stage IV
     Dosage: UNK
     Route: 040
     Dates: start: 20230622
  3. DEXKETOPROFEN [Suspect]
     Active Substance: DEXKETOPROFEN
     Indication: Pain
     Dosage: UNK
     Route: 048
     Dates: start: 20230616, end: 20230626

REACTIONS (1)
  - Renal tubular necrosis [Recovered/Resolved]

NARRATIVE: CASE EVENT DATE: 20230624
